FAERS Safety Report 23708260 (Version 2)
Quarter: 2024Q2

REPORT INFORMATION
  Report Type: Spontaneous
  Country: US (occurrence: US)
  Receive Date: 20240404
  Receipt Date: 20240515
  Transmission Date: 20240716
  Serious: Yes (Other)
  Sender: FDA-Public Use
  Company Number: US-SA-SAC20240404000340

PATIENT
  Age: 44 Year
  Sex: Male

DRUGS (1)
  1. DUPIXENT [Suspect]
     Active Substance: DUPILUMAB
     Indication: Dermatitis atopic
     Dosage: 300 MG, QOW
     Route: 058
     Dates: start: 20190916

REACTIONS (7)
  - Herpes ophthalmic [Unknown]
  - Oral herpes [Unknown]
  - Rash [Recovering/Resolving]
  - Blister [Unknown]
  - Pain of skin [Unknown]
  - Condition aggravated [Unknown]
  - Herpes simplex [Unknown]

NARRATIVE: CASE EVENT DATE: 20190101
